FAERS Safety Report 19243104 (Version 1)
Quarter: 2021Q2

REPORT INFORMATION
  Report Type: Spontaneous
  Country: BR (occurrence: BR)
  Receive Date: 20210511
  Receipt Date: 20210511
  Transmission Date: 20210717
  Serious: Yes (Hospitalization, Other)
  Sender: FDA-Public Use
  Company Number: BR-AMGEN-BRASP2021069626

PATIENT
  Age: 7 Year
  Sex: Male

DRUGS (1)
  1. FILGRASTIM [Suspect]
     Active Substance: FILGRASTIM
     Indication: NEUTROPENIA
     Dosage: UNK
     Route: 065

REACTIONS (6)
  - Asthma [Unknown]
  - Rhinitis allergic [Unknown]
  - Pneumonia [Unknown]
  - Gastroenteritis [Unknown]
  - Dermatitis atopic [Unknown]
  - Off label use [Unknown]
